FAERS Safety Report 15251448 (Version 1)
Quarter: 2018Q4

REPORT INFORMATION
  Report Type: Spontaneous
  Country: CN (occurrence: CN)
  Receive Date: 20180807
  Receipt Date: 20180807
  Transmission Date: 20190204
  Serious: Yes (Disabling, Other)
  Sender: FDA-Public Use
  Company Number: CN-PFIZER INC-2018312501

PATIENT
  Age: 67 Year
  Sex: Female
  Weight: 62 kg

DRUGS (4)
  1. MEGLUMINE ADENOSINE CYCLOPHOSPHATE [Suspect]
     Active Substance: ADENOSINE CYCLIC PHOSPHATE MEGLUMINE
     Indication: CORONARY ARTERY DISEASE
     Dosage: 180 MG, 1X/DAY
     Route: 041
     Dates: start: 20180611, end: 20180626
  2. XUESHUANTONG [Concomitant]
     Active Substance: HERBALS
     Indication: CORONARY ARTERY DISEASE
     Dosage: 0.5 G, 1X/DAY
     Route: 041
     Dates: start: 20180611, end: 20180619
  3. AMLODIPINE/ATORVASTATIN [Suspect]
     Active Substance: AMLODIPINE BESYLATE\ATORVASTATIN CALCIUM
     Indication: HYPERTENSION
     Dosage: 1 DF, 1X/DAY
     Route: 048
     Dates: start: 20180611, end: 20180624
  4. CEFTIZOXIME SODIUM [Suspect]
     Active Substance: CEFTIZOXIME SODIUM
     Indication: LUNG INFECTION
     Dosage: 4 G, 2X/DAY
     Route: 041
     Dates: start: 20180610, end: 20180622

REACTIONS (1)
  - Hepatic function abnormal [Not Recovered/Not Resolved]

NARRATIVE: CASE EVENT DATE: 20180623
